FAERS Safety Report 4818191-7 (Version None)
Quarter: 2005Q3

REPORT INFORMATION
  Report Type: 
  Country: None (occurrence: None)
  Receive Date: 20050929
  Receipt Date: 20050826
  Transmission Date: 20060218
  Serious: No
  Sender: FDA-Public Use
  Company Number: 05P-163-0309752-00

PATIENT
  Sex: Female

DRUGS (6)
  1. HUMIRA [Suspect]
     Dosage: 40 MG, SUBCUTANEOUS
     Route: 058
     Dates: start: 20050812
  2. ACETAMINOPHEN [Concomitant]
  3. MULTI-VITAMINS [Concomitant]
  4. ASPIRIN [Concomitant]
  5. RANITIDEINE [Concomitant]
  6. ALPRAZOLAM [Concomitant]

REACTIONS (4)
  - HEADACHE [None]
  - INJECTION SITE REACTION [None]
  - PYREXIA [None]
  - RASH [None]
